FAERS Safety Report 9407908 (Version 1)
Quarter: 2013Q3

REPORT INFORMATION
  Report Type: Spontaneous
  Country: US (occurrence: None)
  Receive Date: 20130717
  Receipt Date: 20130717
  Transmission Date: 20140515
  Serious: Yes (Other)
  Sender: FDA-Public Use
  Company Number: None

PATIENT
  Age: 26 Year
  Sex: Female

DRUGS (1)
  1. ICLUSIG [Suspect]
     Dosage: 15MG-2 TABLEST QD ORAL
     Route: 048
     Dates: start: 01630611

REACTIONS (2)
  - Dyspnoea [None]
  - Rash [None]
